FAERS Safety Report 6569374-X (Version None)
Quarter: 2010Q1

REPORT INFORMATION
  Report Type: 
  Country: None (occurrence: None)
  Receive Date: 20100204
  Receipt Date: 20100128
  Transmission Date: 20100710
  Serious: Yes (Hospitalization)
  Sender: FDA-Public Use
  Company Number: US-BIOGENIDEC-2010BI003421

PATIENT
  Age: 57 Year
  Sex: Female
  Weight: 70 kg

DRUGS (2)
  1. TYSABRI [Suspect]
     Indication: MULTIPLE SCLEROSIS
     Route: 042
     Dates: start: 20080107, end: 20090601
  2. TYSABRI [Suspect]
     Route: 042
     Dates: start: 20090901

REACTIONS (4)
  - CYSTOPEXY [None]
  - FATIGUE [None]
  - GLAUCOMA [None]
  - LIGAMENT DISORDER [None]
